FAERS Safety Report 22389546 (Version 1)
Quarter: 2023Q2

REPORT INFORMATION
  Report Type: Spontaneous
  Country: US (occurrence: None)
  Receive Date: 20230530
  Receipt Date: 20230530
  Transmission Date: 20230721
  Serious: No
  Sender: FDA-Public Use
  Company Number: None

PATIENT
  Age: 87 Year
  Sex: Female

DRUGS (1)
  1. TOBRAMYCIN [Suspect]
     Active Substance: TOBRAMYCIN
     Indication: Bronchiectasis
     Route: 055
     Dates: start: 202210

REACTIONS (4)
  - Fall [None]
  - Cerebrovascular accident [None]
  - Gastrointestinal disorder [None]
  - Headache [None]

NARRATIVE: CASE EVENT DATE: 20230520
